FAERS Safety Report 15224969 (Version 1)
Quarter: 2018Q3

REPORT INFORMATION
  Report Type: Spontaneous
  Country: KR (occurrence: KR)
  Receive Date: 20180801
  Receipt Date: 20180801
  Transmission Date: 20181010
  Serious: Yes (Death, Other)
  Sender: FDA-Public Use
  Company Number: KR-009507513-1807KOR011315

PATIENT
  Sex: Female

DRUGS (52)
  1. CURAN [Concomitant]
     Active Substance: RANITIDINE HYDROCHLORIDE
     Dosage: UNK UNK, BID
     Route: 048
     Dates: start: 20180603, end: 20180609
  2. ENTELON [Concomitant]
     Dosage: UNK, BID
     Route: 048
     Dates: start: 20180603, end: 20180610
  3. KALIMATE [Concomitant]
     Active Substance: CALCIUM POLYSTYRENE SULFONATE
     Dosage: UNK, BID
     Dates: start: 20180602
  4. TARGIN [Concomitant]
     Active Substance: NALOXONE HYDROCHLORIDE\OXYCODONE HYDROCHLORIDE
     Dosage: UNK, BID
     Route: 048
     Dates: start: 20180607, end: 20180610
  5. ZYLORIC [Concomitant]
     Active Substance: ALLOPURINOL
     Dosage: UNK, QD
     Route: 048
     Dates: start: 20180602
  6. DEXTROSE (+) SODIUM CHLORIDE [Concomitant]
     Dosage: CJ 5% GLUCOSE SALINE INJ 1000ML, BID
     Dates: start: 20180602
  7. SODIUM CHLORIDE. [Concomitant]
     Active Substance: SODIUM CHLORIDE
     Dosage: UNK, QD
     Dates: start: 20180606, end: 20180610
  8. ALMAX [Concomitant]
     Dosage: UNK, QID
     Dates: start: 20180603, end: 20180609
  9. NAXEN F [Concomitant]
     Dosage: UNK, QD
     Route: 048
     Dates: start: 20180602
  10. X PAIN [Concomitant]
     Dosage: UNK, BID
     Route: 048
     Dates: start: 20180602
  11. ZYLORIC [Concomitant]
     Active Substance: ALLOPURINOL
     Dosage: UNK, BID
     Route: 048
     Dates: start: 20180602, end: 20180603
  12. TRIDOL (BUPRENORPHINE) [Concomitant]
     Dosage: STRENGHT: 50MG/ML, QD
     Dates: start: 20180603, end: 20180606
  13. TRIDOL (BUPRENORPHINE) [Concomitant]
     Dosage: STRENGHT: 50MG/ML, TID
     Dates: start: 20180605, end: 20180608
  14. CYMBALTA [Concomitant]
     Active Substance: DULOXETINE HYDROCHLORIDE
     Dosage: UNK, QD
     Route: 048
     Dates: start: 20180607
  15. CYMBALTA [Concomitant]
     Active Substance: DULOXETINE HYDROCHLORIDE
     Dosage: UNK, BID
     Route: 048
     Dates: start: 20180608, end: 20180610
  16. NEURONTIN [Concomitant]
     Active Substance: GABAPENTIN
     Dosage: UNK, TID
     Route: 048
     Dates: start: 20180604, end: 20180611
  17. IRCODON [Concomitant]
     Active Substance: OXYCODONE HYDROCHLORIDE
     Dosage: UNK, QD
     Route: 048
     Dates: start: 20180607, end: 20180611
  18. TARGIN [Concomitant]
     Active Substance: NALOXONE HYDROCHLORIDE\OXYCODONE HYDROCHLORIDE
     Dosage: UNK, BID
     Route: 048
     Dates: start: 20180602, end: 20180605
  19. WINUF PERI [Concomitant]
     Dosage: UNK, QD
     Dates: start: 20180607, end: 20180610
  20. TRIDOL (BUPRENORPHINE) [Concomitant]
     Dosage: STRENGHT: 50MG/ML, BID
     Dates: start: 20180609
  21. VENOFERRUM [Concomitant]
     Dosage: UNK, BID
     Dates: start: 20180602
  22. ALMAX [Concomitant]
     Dosage: UNK, BID
     Dates: start: 20180605
  23. DUPHALAC [Concomitant]
     Active Substance: LACTULOSE
     Dosage: UNK UNK, QD
     Dates: start: 20180607, end: 20180610
  24. NEURONTIN [Concomitant]
     Active Substance: GABAPENTIN
     Dosage: UNK, QD
     Route: 048
     Dates: start: 20180602
  25. NEURONTIN [Concomitant]
     Active Substance: GABAPENTIN
     Dosage: UNK, BID
     Route: 048
     Dates: start: 20180602, end: 20180610
  26. IRCODON [Concomitant]
     Active Substance: OXYCODONE HYDROCHLORIDE
     Dosage: UNK, TID
     Route: 048
     Dates: start: 20180606
  27. ZYLORIC [Concomitant]
     Active Substance: ALLOPURINOL
     Dosage: UNK, TID
     Route: 048
     Dates: start: 20180604
  28. SODIUM CHLORIDE. [Concomitant]
     Active Substance: SODIUM CHLORIDE
     Dosage: UNK UNK, QD
     Dates: start: 20180608
  29. MUTERAN [Concomitant]
     Active Substance: ACETYLCYSTEINE
     Dosage: STRENGTH: 100MG/ 100ML, BID
     Dates: start: 20180605
  30. TAMIPOOL [Concomitant]
     Active Substance: VITAMINS
     Dosage: UNK, QD
     Dates: start: 20180604, end: 20180609
  31. ENTELON [Concomitant]
     Dosage: UNK UNK, QD
     Route: 048
     Dates: start: 20180602
  32. SODIUM CHLORIDE. [Concomitant]
     Active Substance: SODIUM CHLORIDE
     Dosage: UNK, QD
     Dates: start: 20180604, end: 20180610
  33. SODIUM CHLORIDE. [Concomitant]
     Active Substance: SODIUM CHLORIDE
     Dosage: UNK, BID
     Dates: start: 20180605
  34. ALMAX [Concomitant]
     Dosage: UNK, TID
     Dates: start: 20180610
  35. CURAN [Concomitant]
     Active Substance: RANITIDINE HYDROCHLORIDE
     Dosage: UNK UNK, QD
     Route: 048
     Dates: start: 20180602, end: 20180605
  36. LACIDOFIL [Concomitant]
     Active Substance: LACTOBACILLUS ACIDOPHILUS\LACTOBACILLUS RHAMNOSUS
     Dosage: UNK, QD
     Route: 048
     Dates: start: 20180607
  37. MACPERAN [Concomitant]
     Active Substance: METOCLOPRAMIDE HYDROCHLORIDE
     Dosage: UNK UNK, BID
     Route: 048
     Dates: start: 20180603, end: 20180607
  38. IRCODON [Concomitant]
     Active Substance: OXYCODONE HYDROCHLORIDE
     Dosage: UNK, QD
     Route: 048
     Dates: start: 20180602, end: 20180603
  39. XARELTO [Concomitant]
     Active Substance: RIVAROXABAN
     Dosage: UNK, QD
     Route: 048
     Dates: start: 20180602
  40. TARGIN [Concomitant]
     Active Substance: NALOXONE HYDROCHLORIDE\OXYCODONE HYDROCHLORIDE
     Dosage: UNK, QD
     Route: 048
     Dates: start: 20180606
  41. NESP [Concomitant]
     Active Substance: DARBEPOETIN ALFA
     Dosage: UNK, TID
     Dates: start: 20180602
  42. BLOOD CELLS, RED [Concomitant]
     Active Substance: HUMAN RED BLOOD CELL
     Dosage: UNK, TID
     Dates: start: 20180604
  43. LACIDOFIL [Concomitant]
     Active Substance: LACTOBACILLUS ACIDOPHILUS\LACTOBACILLUS RHAMNOSUS
     Dosage: UNK, BID
     Route: 048
     Dates: start: 20180608, end: 20180610
  44. MACPERAN [Concomitant]
     Active Substance: METOCLOPRAMIDE HYDROCHLORIDE
     Dosage: UNK UNK, QD
     Route: 048
     Dates: start: 20180603, end: 20180607
  45. SODIUM CHLORIDE. [Concomitant]
     Active Substance: SODIUM CHLORIDE
     Dosage: UNK, TID
     Dates: start: 20180602, end: 20180604
  46. SODIUM CHLORIDE. [Concomitant]
     Active Substance: SODIUM CHLORIDE
     Dosage: UNK, QD
     Dates: start: 20180608
  47. FRAGMIN [Concomitant]
     Active Substance: DALTEPARIN SODIUM
     Dosage: STRENGTH: 7500IU/0.3ML, QD
     Dates: start: 20180605, end: 20180611
  48. KEYTRUDA [Suspect]
     Active Substance: PEMBROLIZUMAB
     Indication: CERVIX CARCINOMA
     Dosage: UNK UNK, BID
     Dates: start: 20180610
  49. KETOTOP EL [Concomitant]
     Dosage: 30MG/SHEET, QD
     Dates: start: 20180605, end: 20180610
  50. IRCODON [Concomitant]
     Active Substance: OXYCODONE HYDROCHLORIDE
     Dosage: UNK, QD
     Route: 048
     Dates: start: 20180604, end: 20180609
  51. SODIUM CHLORIDE. [Concomitant]
     Active Substance: SODIUM CHLORIDE
     Dosage: UNK, BID
     Dates: start: 20180605, end: 20180608
  52. WINUF PERI [Concomitant]
     Dosage: UNK, QD
     Dates: start: 20180606

REACTIONS (4)
  - Cervix carcinoma recurrent [Fatal]
  - Product use in unapproved indication [Unknown]
  - Multiple organ dysfunction syndrome [Fatal]
  - Drug prescribing error [Unknown]

NARRATIVE: CASE EVENT DATE: 201806
